FAERS Safety Report 8506218-0 (Version None)
Quarter: 2012Q3

REPORT INFORMATION
  Report Type: 
  Country: None (occurrence: None)
  Receive Date: 20120706
  Receipt Date: 20120706
  Transmission Date: 20120928
  Serious: Yes (Hospitalization)
  Sender: FDA-Public Use
  Company Number: None

PATIENT
  Sex: Male
  Weight: 62.7 kg

DRUGS (1)
  1. ERBITUX [Suspect]
     Dosage: 56 MG

REACTIONS (6)
  - INFUSION RELATED REACTION [None]
  - CHEST PAIN [None]
  - UNRESPONSIVE TO STIMULI [None]
  - HYPOXIA [None]
  - HYPOTENSION [None]
  - COLD SWEAT [None]
